FAERS Safety Report 4860694-3 (Version None)
Quarter: 2005Q4

REPORT INFORMATION
  Report Type: 
  Country: None (occurrence: None)
  Receive Date: 20051216
  Receipt Date: 20051129
  Transmission Date: 20060501
  Serious: Yes (Death, Hospitalization, Other)
  Sender: FDA-Public Use
  Company Number: USA0507102978

PATIENT
  Age: 86 Year
  Sex: Female

DRUGS (10)
  1. FORTEO [Suspect]
     Indication: OSTEOPOROSIS
     Dates: start: 20050601
  2. ALPRAZOLAM [Concomitant]
  3. PROCRIT [Concomitant]
  4. LOTENSIN [Concomitant]
  5. QUININE SULFATE [Concomitant]
  6. COUMADIN [Concomitant]
  7. NEURONTIN [Concomitant]
  8. VITAMINS NOS [Concomitant]
  9. FORTEO PEN (FORTEO PEN) [Concomitant]
  10. SYNTHROID [Concomitant]

REACTIONS (18)
  - ACUTE MYOCARDIAL INFARCTION [None]
  - AORTIC VALVE INCOMPETENCE [None]
  - AORTIC VALVE STENOSIS [None]
  - BLOOD CHLORIDE DECREASED [None]
  - CARDIAC FAILURE CONGESTIVE [None]
  - CONSTIPATION [None]
  - DILATATION ATRIAL [None]
  - FLUID OVERLOAD [None]
  - HAEMATOCRIT DECREASED [None]
  - HAEMOGLOBIN DECREASED [None]
  - HYPONATRAEMIA [None]
  - ILEUS [None]
  - LUNG CONSOLIDATION [None]
  - MITRAL VALVE STENOSIS [None]
  - SINUS ARRHYTHMIA [None]
  - VENTRICULAR HYPERTROPHY [None]
  - VENTRICULAR HYPOKINESIA [None]
  - WHITE BLOOD CELL COUNT INCREASED [None]
